FAERS Safety Report 19462780 (Version 1)
Quarter: 2021Q2

REPORT INFORMATION
  Report Type: Report from Study
  Country: US (occurrence: US)
  Receive Date: 20210625
  Receipt Date: 20210625
  Transmission Date: 20210717
  Serious: Yes (Other)
  Sender: FDA-Public Use
  Company Number: US-ASTRAZENECA-2021A532698

PATIENT
  Sex: Male

DRUGS (1)
  1. TAGRISSO [Suspect]
     Active Substance: OSIMERTINIB
     Indication: LUNG CARCINOMA CELL TYPE UNSPECIFIED STAGE 0
     Route: 048

REACTIONS (16)
  - Dyspnoea [Unknown]
  - Dry skin [Unknown]
  - Asthenia [Not Recovered/Not Resolved]
  - Feeling jittery [Unknown]
  - Gait disturbance [Recovering/Resolving]
  - Rash [Recovering/Resolving]
  - Appetite disorder [Unknown]
  - Fatigue [Unknown]
  - Visual impairment [Not Recovered/Not Resolved]
  - Pain [Unknown]
  - Joint swelling [Unknown]
  - Migraine [Unknown]
  - Arthralgia [Unknown]
  - Metastases to central nervous system [Recovering/Resolving]
  - Feeling abnormal [Unknown]
  - Alopecia [Unknown]
